FAERS Safety Report 13452455 (Version 1)
Quarter: 2017Q2

REPORT INFORMATION
  Report Type: Spontaneous
  Country: US (occurrence: US)
  Receive Date: 20170418
  Receipt Date: 20170418
  Transmission Date: 20170830
  Serious: No
  Sender: FDA-Public Use
  Company Number: US-TEVA-688042USA

PATIENT
  Age: 71 Year
  Sex: Male

DRUGS (1)
  1. WARFARIN SODIUM. [Suspect]
     Active Substance: WARFARIN SODIUM
     Dates: start: 2015

REACTIONS (4)
  - Insomnia [Not Recovered/Not Resolved]
  - Sleep disorder [Unknown]
  - Agitation [Unknown]
  - Product substitution issue [Unknown]

NARRATIVE: CASE EVENT DATE: 2015
